FAERS Safety Report 9022043 (Version 1)
Quarter: 2013Q1

REPORT INFORMATION
  Report Type: Spontaneous
  Country: US (occurrence: US)
  Receive Date: 20130118
  Receipt Date: 20130118
  Transmission Date: 20140127
  Serious: Yes (Other)
  Sender: FDA-Public Use
  Company Number: US-SANOFI-AVENTIS-2012SA050360

PATIENT
  Age: 69 Year
  Sex: Female
  Weight: 105.9 kg

DRUGS (6)
  1. LASIX [Suspect]
     Indication: PRODUCT USED FOR UNKNOWN INDICATION
     Route: 065
  2. LISINOPRIL [Suspect]
     Indication: PRODUCT USED FOR UNKNOWN INDICATION
  3. PREDNISONE [Suspect]
     Indication: SYSTEMIC LUPUS ERYTHEMATOSUS
  4. PREDNISONE [Suspect]
     Indication: ADRENAL INSUFFICIENCY
  5. PREDNISONE [Suspect]
     Indication: SYSTEMIC LUPUS ERYTHEMATOSUS
  6. PREDNISONE [Suspect]
     Indication: ADRENAL INSUFFICIENCY

REACTIONS (1)
  - Anaphylactic reaction [Unknown]
